FAERS Safety Report 5409527-7 (Version None)
Quarter: 2007Q3

REPORT INFORMATION
  Report Type: 
  Country: None (occurrence: None)
  Receive Date: 20070808
  Receipt Date: 20070808
  Transmission Date: 20080115
  Serious: Yes (Disabling, Other)
  Sender: FDA-Public Use
  Company Number: None

PATIENT
  Age: 76 Year
  Sex: Male
  Weight: 86.1834 kg

DRUGS (1)
  1. REQUIP [Suspect]
     Indication: PARKINSON'S DISEASE
     Dosage: 0.25 MG 3 TIMES DAILY PO
     Route: 048

REACTIONS (4)
  - FEAR [None]
  - INSOMNIA [None]
  - PANIC ATTACK [None]
  - SEDATION [None]
